FAERS Safety Report 8544222-7 (Version None)
Quarter: 2012Q3

REPORT INFORMATION
  Report Type: 
  Country: None (occurrence: None)
  Receive Date: 20120727
  Receipt Date: 20120726
  Transmission Date: 20120928
  Serious: Yes (Other)
  Sender: FDA-Public Use
  Company Number: PHHY2012AU058534

PATIENT
  Sex: Male

DRUGS (5)
  1. CLOZARIL [Suspect]
     Dosage: 175 MG, DAILY (AT NIGHT)
     Route: 048
     Dates: start: 20120710
  2. FLUOXETINE HCL [Concomitant]
     Indication: DEPRESSION
     Dosage: 20 MG DAILY(IN MANE)
  3. LITHIUM CARBONATE [Concomitant]
     Dosage: 500 MG DAILY (IN NIGHT)
     Dates: start: 20120720
  4. CLOZARIL [Suspect]
     Indication: PSYCHOTIC DISORDER
     Dosage: 150 MG DAILY (AT NIGHT)
     Route: 048
     Dates: start: 20120619
  5. LITHIUM CARBONATE [Concomitant]
     Dosage: 250 MG DAILY (IN MANE)

REACTIONS (3)
  - ELECTROCARDIOGRAM T WAVE ABNORMAL [None]
  - TACHYCARDIA [None]
  - TROPONIN INCREASED [None]
